FAERS Safety Report 9429239 (Version 2)
Quarter: 2013Q3

REPORT INFORMATION
  Report Type: Spontaneous
  Country: FR (occurrence: FR)
  Receive Date: 20130730
  Receipt Date: 20130805
  Transmission Date: 20140515
  Serious: Yes (Hospitalization, Other)
  Sender: FDA-Public Use
  Company Number: FR-PFIZER INC-2013218206

PATIENT
  Age: 65 Year
  Sex: Female

DRUGS (12)
  1. AMLOR [Suspect]
     Indication: HYPERTENSION
     Dosage: 10 MG, DAILY
     Route: 048
  2. TAHOR [Suspect]
     Indication: HYPERCHOLESTEROLAEMIA
     Dosage: 20 MG, DAILY
     Route: 048
     Dates: end: 201304
  3. DIAMICRON [Suspect]
     Indication: DIABETES MELLITUS
     Dosage: 60 MG, DAILY
     Route: 048
     Dates: end: 201304
  4. EUCREAS [Suspect]
     Indication: DIABETES MELLITUS
     Dosage: 2 DF, DAILY
     Route: 048
     Dates: end: 201304
  5. COAPROVEL [Suspect]
     Indication: HYPERTENSION
     Dosage: 1 DF DAILY
     Route: 048
  6. LEVOTHYROX [Suspect]
     Indication: HYPOTHYROIDISM
     Dosage: 125 NG, DAILY
     Route: 048
  7. SEROPLEX [Suspect]
     Dosage: 10 MG, DAILY
     Route: 048
     Dates: start: 201212, end: 201304
  8. IXPRIM [Suspect]
     Indication: NECK PAIN
     Dosage: UNK
     Route: 048
     Dates: start: 20130314, end: 2013
  9. DOLIPRANE [Suspect]
     Indication: NECK PAIN
     Dosage: UNK
     Route: 048
     Dates: start: 20130312, end: 2013
  10. VOLTARENE [Suspect]
     Indication: NECK PAIN
     Dosage: UNK
     Route: 003
     Dates: start: 20130305, end: 2013
  11. VOLTARENE [Suspect]
     Indication: NECK PAIN
     Dosage: UNK
     Route: 048
     Dates: start: 20130305, end: 2013
  12. LAMALINE [Suspect]
     Indication: NECK PAIN
     Dosage: UNK
     Dates: start: 20130312, end: 2013

REACTIONS (4)
  - Hepatitis cholestatic [Not Recovered/Not Resolved]
  - Pruritus [Recovered/Resolved]
  - Jaundice [Recovered/Resolved]
  - Hepatocellular injury [Unknown]
